FAERS Safety Report 6902835-X (Version None)
Quarter: 2010Q3

REPORT INFORMATION
  Report Type: 
  Country: None (occurrence: None)
  Receive Date: 20100803
  Receipt Date: 20080903
  Transmission Date: 20110219
  Serious: No
  Sender: FDA-Public Use
  Company Number: US-PFIZER INC-2008074150

PATIENT
  Sex: Male
  Weight: 102.06 kg

DRUGS (8)
  1. LYRICA [Suspect]
     Indication: BACK PAIN
     Dates: start: 20080801
  2. LYRICA [Suspect]
     Indication: NERVOUS SYSTEM DISORDER
  3. HYDROCODONE BITARTRATE [Concomitant]
  4. ZOCOR [Concomitant]
  5. CELEBREX [Concomitant]
  6. SKELAXIN [Concomitant]
  7. ALL OTHER THERAPEUTIC PRODUCTS [Concomitant]
  8. PREVACID [Concomitant]

REACTIONS (2)
  - INCORRECT DOSE ADMINISTERED [None]
  - SOMNOLENCE [None]
